FAERS Safety Report 6735900-0 (Version None)
Quarter: 2010Q2

REPORT INFORMATION
  Report Type: 
  Country: None (occurrence: None)
  Receive Date: 20100521
  Receipt Date: 20100513
  Transmission Date: 20101027
  Serious: Yes (Hospitalization)
  Sender: FDA-Public Use
  Company Number: A0860505A

PATIENT
  Age: 57 Year
  Sex: Male

DRUGS (1)
  1. AVANDIA [Suspect]
     Indication: DIABETES MELLITUS
     Dosage: 2MG TWICE PER DAY
     Dates: start: 19990101, end: 20070101

REACTIONS (4)
  - CHEST PAIN [None]
  - DYSPNOEA [None]
  - FLUID RETENTION [None]
  - MYOCARDIAL INFARCTION [None]
